FAERS Safety Report 7235007-2 (Version None)
Quarter: 2011Q1

REPORT INFORMATION
  Report Type: 
  Country: None (occurrence: None)
  Receive Date: 20110120
  Receipt Date: 20110114
  Transmission Date: 20110831
  Serious: Yes (Hospitalization)
  Sender: FDA-Public Use
  Company Number: JP-BAYER-201014271BYL

PATIENT
  Sex: Male
  Weight: 58 kg

DRUGS (9)
  1. ADALAT [Concomitant]
     Indication: HYPERTENSION
     Dosage: DAILY DOSE 20 MG
     Route: 048
  2. SELOKEN [Concomitant]
     Indication: ANGINA PECTORIS
     Dosage: DAILY DOSE 40 MG
     Route: 048
  3. GLUCOBAY [Concomitant]
     Indication: DIABETES MELLITUS
     Dosage: DAILY DOSE 300 MG
     Route: 048
  4. NEXAVAR [Suspect]
     Indication: RENAL CELL CARCINOMA
     Dosage: 400 MG, BID
     Route: 048
     Dates: start: 20100804, end: 20100914
  5. NITOROL [Concomitant]
     Indication: ANGINA PECTORIS
     Dosage: DAILY DOSE 40 MG
     Route: 048
  6. BUFFERIN [Concomitant]
     Indication: ANGINA PECTORIS
     Dosage: DAILY DOSE 81 MG
     Route: 048
  7. NEXAVAR [Suspect]
     Dosage: 400 MG, QD
     Dates: start: 20101006, end: 20101223
  8. FERROUS CITRATE [Concomitant]
     Indication: ANAEMIA
     Dosage: DAILY DOSE 50 MG
     Route: 048
     Dates: start: 20101101
  9. DIOVAN [Concomitant]
     Indication: HYPERTENSION
     Dosage: DAILY DOSE 40 MG
     Route: 048
     Dates: end: 20101101

REACTIONS (4)
  - CHEST PAIN [None]
  - PYREXIA [None]
  - ALTERED STATE OF CONSCIOUSNESS [None]
  - ERYTHEMA [None]
